FAERS Safety Report 6503130-3 (Version None)
Quarter: 2009Q4

REPORT INFORMATION
  Report Type: 
  Country: None (occurrence: None)
  Receive Date: 20091217
  Receipt Date: 20091210
  Transmission Date: 20100525
  Serious: No
  Sender: FDA-Public Use
  Company Number: US-B.I. PHARMACEUTICALS,INC./RIDGEFIELD-2009-BP-14314BP

PATIENT
  Sex: Male

DRUGS (5)
  1. SPIRIVA [Suspect]
     Indication: CONSTIPATION
     Dosage: 18 MCG
     Route: 055
     Dates: start: 20091115, end: 20091204
  2. COSOPT [Concomitant]
     Indication: GLAUCOMA
  3. ALPHAGAN [Concomitant]
     Indication: GLAUCOMA
  4. LUMIGAN [Concomitant]
     Indication: GLAUCOMA
  5. FLOMAX [Concomitant]
     Indication: PROSTATOMEGALY
     Dosage: 0.4 MG
     Route: 048
     Dates: start: 20090801

REACTIONS (3)
  - CONSTIPATION [None]
  - DYSURIA [None]
  - VISUAL ACUITY REDUCED [None]
